FAERS Safety Report 4965634-4 (Version None)
Quarter: 2006Q1

REPORT INFORMATION
  Report Type: 
  Country: None (occurrence: None)
  Receive Date: 20060201
  Receipt Date: 20051016
  Transmission Date: 20060701
  Serious: No
  Sender: FDA-Public Use
  Company Number: 2005PV003174

PATIENT
  Age: 53 Year
  Sex: Male
  Weight: 134.2647 kg

DRUGS (9)
  1. BYETTA [Suspect]
     Indication: DIABETES MELLITUS NON-INSULIN-DEPENDENT
     Dosage: 10 MCG; BID; SC
     Route: 058
     Dates: start: 20050907, end: 20050101
  2. BYETTA [Suspect]
     Indication: DIABETES MELLITUS NON-INSULIN-DEPENDENT
     Dosage: 10 MCG; BID; SC
     Route: 058
     Dates: start: 20051010
  3. AVANDIA [Concomitant]
  4. HYDROCODONE [Concomitant]
  5. GLIPIZIDE [Concomitant]
  6. AMITRIPTYLINE HCL [Concomitant]
  7. PRINIVIL [Concomitant]
  8. TRICOR [Concomitant]
  9. PAXIL [Concomitant]

REACTIONS (8)
  - ABDOMINAL PAIN UPPER [None]
  - ANOREXIA [None]
  - ASTHENIA [None]
  - BLOOD GLUCOSE INCREASED [None]
  - DRUG INEFFECTIVE [None]
  - INCREASED APPETITE [None]
  - INJECTION SITE PAIN [None]
  - WEIGHT DECREASED [None]
